FAERS Safety Report 18852811 (Version 1)
Quarter: 2021Q1

REPORT INFORMATION
  Report Type: Spontaneous
  Country: US (occurrence: US)
  Receive Date: 20210205
  Receipt Date: 20210205
  Transmission Date: 20210420
  Serious: Yes (Other)
  Sender: FDA-Public Use
  Company Number: None

PATIENT
  Age: 77 Year
  Sex: Male
  Weight: 90 kg

DRUGS (1)
  1. METAMUCIL [Suspect]
     Active Substance: PLANTAGO SEED
     Indication: HAEMORRHOIDS
     Dosage: ?          QUANTITY:1 TABLET(S);?
     Route: 048
     Dates: start: 20180201, end: 20210205

REACTIONS (2)
  - Pruritus [None]
  - Skin irritation [None]
